FAERS Safety Report 7355562-1 (Version None)
Quarter: 2011Q1

REPORT INFORMATION
  Report Type: 
  Country: None (occurrence: None)
  Receive Date: 20110316
  Receipt Date: 20110309
  Transmission Date: 20110831
  Serious: Yes (Hospitalization, Congenital Anomaly)
  Sender: FDA-Public Use
  Company Number: A0918347A

PATIENT
  Sex: Male
  Weight: 2.2 kg

DRUGS (1)
  1. PAXIL CR [Suspect]
     Indication: PANIC DISORDER
     Dosage: 25MG PER DAY
     Route: 048

REACTIONS (3)
  - DRUG EXPOSURE DURING PREGNANCY [None]
  - ARTHROPATHY [None]
  - TALIPES [None]
